FAERS Safety Report 20125051 (Version 8)
Quarter: 2025Q1

REPORT INFORMATION
  Report Type: Spontaneous
  Country: US (occurrence: US)
  Receive Date: 20211129
  Receipt Date: 20250131
  Transmission Date: 20250408
  Serious: Yes (Hospitalization)
  Sender: PFIZER
  Company Number: US-PFIZER INC-202101662576

PATIENT
  Age: 71 Year
  Sex: Female

DRUGS (1)
  1. XELJANZ XR [Suspect]
     Active Substance: TOFACITINIB CITRATE

REACTIONS (7)
  - Infection [Unknown]
  - Dermatitis contact [Unknown]
  - Hyperkeratosis [Unknown]
  - Fungal skin infection [Unknown]
  - Arthritis [Unknown]
  - Myositis [Unknown]
  - Illness [Unknown]

NARRATIVE: CASE EVENT DATE: 20230418
